FAERS Safety Report 20849795 (Version 1)
Quarter: 2022Q2

REPORT INFORMATION
  Report Type: Spontaneous
  Country: US (occurrence: None)
  Receive Date: 20220519
  Receipt Date: 20220519
  Transmission Date: 20220721
  Serious: Yes (Hospitalization, Other)
  Sender: FDA-Public Use
  Company Number: US-Fresenius Kabi-FK202205743

PATIENT
  Age: 26 Year
  Sex: Male

DRUGS (4)
  1. METHYLPREDNISOLONE [Suspect]
     Active Substance: METHYLPREDNISOLONE
     Indication: Haemophagocytic lymphohistiocytosis
     Dosage: Q8H
  2. ANAKINRA [Suspect]
     Active Substance: ANAKINRA
     Indication: Haemophagocytic lymphohistiocytosis
     Dosage: 1-2 MG/KG Q6H
  3. TOCILIZUMAB [Suspect]
     Active Substance: TOCILIZUMAB
     Indication: Haemophagocytic lymphohistiocytosis
     Dosage: SECOND TOCILIZUMAB DOSE
  4. UNSPECIFIED INGREDIENT [Concomitant]
     Active Substance: UNSPECIFIED INGREDIENT
     Indication: Cholecystitis

REACTIONS (6)
  - Atypical haemolytic uraemic syndrome [Unknown]
  - Febrile neutropenia [Unknown]
  - Haemoptysis [Unknown]
  - Hypoxia [Unknown]
  - Staphylococcal infection [Unknown]
  - Viral infection [Unknown]
